FAERS Safety Report 8325045-0 (Version None)
Quarter: 2012Q2

REPORT INFORMATION
  Report Type: 
  Country: None (occurrence: None)
  Receive Date: 20120501
  Receipt Date: 20120417
  Transmission Date: 20120825
  Serious: Yes (Other)
  Sender: FDA-Public Use
  Company Number: FR-MYLANLABS-2012S1008320

PATIENT
  Age: 1 Month
  Sex: Female

DRUGS (7)
  1. ZIDOVUDINE [Suspect]
     Indication: HIV INFECTION
     Route: 064
     Dates: start: 20090701
  2. RITONAVIR [Suspect]
     Indication: HIV INFECTION
     Route: 064
     Dates: start: 20090701
  3. LAMIVUDINE [Suspect]
     Indication: HIV INFECTION
     Route: 064
     Dates: start: 20090701
  4. SAQUINAVIR [Suspect]
     Indication: HIV INFECTION
     Route: 062
     Dates: start: 20090701
  5. ZIDOVUDINE [Suspect]
     Dosage: 4 MG/KG
     Route: 065
     Dates: start: 20090701
  6. ZIDOVUDINE [Suspect]
     Indication: PROPHYLAXIS AGAINST HIV INFECTION
     Route: 064
     Dates: start: 20090701
  7. ZIDOVUDINE [Suspect]
     Dosage: 4 MG/KG
     Route: 065
     Dates: start: 20090701

REACTIONS (3)
  - MATERNAL EXPOSURE DURING PREGNANCY [None]
  - LEUKOCYTOSIS [None]
  - EOSINOPHILIA [None]
